FAERS Safety Report 16404839 (Version 1)
Quarter: 2019Q2

REPORT INFORMATION
  Report Type: Spontaneous
  Country: US (occurrence: US)
  Receive Date: 20190501
  Receipt Date: 20190501
  Transmission Date: 20190711
  Serious: Yes (Life-Threatening)
  Sender: FDA-Public Use
  Company Number: None

PATIENT
  Age: 72 Year
  Sex: Male
  Weight: 92.08 kg

DRUGS (1)
  1. HEPARIN [Suspect]
     Active Substance: HEPARIN SODIUM
     Indication: CARDIAC OPERATION
     Dates: start: 20190108, end: 20190108

REACTIONS (5)
  - Thrombocytopenia [None]
  - Thrombosis [None]
  - Heparin-induced thrombocytopenia [None]
  - Decreased appetite [None]
  - Mobility decreased [None]

NARRATIVE: CASE EVENT DATE: 20190117
